FAERS Safety Report 8659760 (Version 4)
Quarter: 2012Q4

REPORT INFORMATION
  Report Type: 
  Country: DE (occurrence: DE)
  Receive Date: 20120711
  Receipt Date: 20120831
  Transmission Date: 20130627
  Serious: Yes (Death, Other)
  Sender: FDA-Public Use
  Company Number: DE-GENZYME-THYM-1003319

PATIENT
  Age: 50 Year
  Sex: Male
  Weight: 70 kg

DRUGS (6)
  1. THYMOGLOBULIN [Suspect]
     Indication: RENAL TRANSPLANT
     Dosage: 100 mg, once
     Route: 065
     Dates: start: 20120624, end: 20120624
  2. SOLU-DACORTIN [Concomitant]
     Indication: TRANSPLANT
     Dosage: 500 mg, UNK
     Route: 065
     Dates: start: 20120624
  3. DIFLUCAN [Concomitant]
     Indication: TRANSPLANT
     Dosage: 100 mg, UNK
     Route: 065
     Dates: start: 20120624, end: 20120627
  4. ROCEPHIN [Concomitant]
     Indication: TRANSPLANT
     Dosage: 2 g, UNK
     Route: 061
     Dates: start: 20120624, end: 20120626
  5. CYMEVEN [Concomitant]
     Indication: TRANSPLANT
     Dosage: 100 mg, UNK
     Route: 065
     Dates: start: 20120624, end: 20120629
  6. KYBERNIN [Concomitant]
     Indication: TRANSPLANT
     Dosage: 1.500 mg, UNK
     Route: 065
     Dates: start: 20120624, end: 20120701

REACTIONS (9)
  - Death [Fatal]
  - Haemorrhage subcutaneous [Unknown]
  - Rhabdomyolysis [Not Recovered/Not Resolved]
  - Duodenal ulcer haemorrhage [Unknown]
  - Pancreatitis haemorrhagic [Unknown]
  - Thrombocytopenia [Unknown]
  - Transplant failure [Unknown]
  - Kidney transplant rejection [None]
  - Pancreas transplant rejection [None]
